FAERS Safety Report 9475519 (Version 2)
Quarter: 2013Q3

REPORT INFORMATION
  Report Type: Spontaneous
  Country: US (occurrence: US)
  Receive Date: 20130826
  Receipt Date: 20130828
  Transmission Date: 20140515
  Serious: No
  Sender: FDA-Public Use
  Company Number: US-009507513-1308USA010393

PATIENT
  Age: 56 Year
  Sex: 0

DRUGS (1)
  1. PROVENTIL [Suspect]
     Dosage: ONE STANDARD DOSE OF 6.7
     Route: 055
     Dates: start: 20130802

REACTIONS (3)
  - Drug dose omission [Unknown]
  - Product quality control issue [Unknown]
  - No adverse event [Unknown]
